FAERS Safety Report 11540575 (Version 1)
Quarter: 2015Q3

REPORT INFORMATION
  Report Type: Spontaneous
  Country: US (occurrence: US)
  Receive Date: 20150923
  Receipt Date: 20150923
  Transmission Date: 20151125
  Serious: No
  Sender: FDA-Public Use
  Company Number: US-BEH-2015050180

PATIENT
  Sex: Male
  Weight: 99 kg

DRUGS (15)
  1. LIDOCAINE. [Concomitant]
     Active Substance: LIDOCAINE
  2. HEPARIN [Concomitant]
     Active Substance: HEPARIN SODIUM
  3. METHOTREXATE [Concomitant]
     Active Substance: METHOTREXATE
  4. NORMAL SALINE [Concomitant]
     Active Substance: SODIUM CHLORIDE
  5. EPIPEN [Concomitant]
     Active Substance: EPINEPHRINE
  6. DIPHENHYDRAMINE. [Concomitant]
     Active Substance: DIPHENHYDRAMINE
  7. SODIUM CHLORIDE. [Concomitant]
     Active Substance: SODIUM CHLORIDE
  8. PREDNISONE. [Concomitant]
     Active Substance: PREDNISONE
  9. NAPROXEN. [Concomitant]
     Active Substance: NAPROXEN
  10. FAMOTIDINE. [Concomitant]
     Active Substance: FAMOTIDINE
  11. PRIVIGEN [Suspect]
     Active Substance: HUMAN IMMUNOGLOBULIN G
     Indication: DERMATOMYOSITIS
     Dosage: 10 GM; 50 GM DAILY FOR 4 DAYS EVERY 4 WEEKS
     Route: 042
  12. ACETAMINOPHEN. [Concomitant]
     Active Substance: ACETAMINOPHEN
  13. SOLU-MEDROL [Concomitant]
     Active Substance: METHYLPREDNISOLONE SODIUM SUCCINATE
  14. VITAMIN D2 [Concomitant]
     Active Substance: ERGOCALCIFEROL
  15. LEUCOVORIN. [Concomitant]
     Active Substance: LEUCOVORIN

REACTIONS (1)
  - Nausea [Unknown]
